FAERS Safety Report 6988402-0 (Version None)
Quarter: 2010Q3

REPORT INFORMATION
  Report Type: 
  Country: None (occurrence: None)
  Receive Date: 20100916
  Receipt Date: 20100810
  Transmission Date: 20110219
  Serious: Yes (Hospitalization, Other)
  Sender: FDA-Public Use
  Company Number: PHEH2006US10901

PATIENT
  Sex: Female

DRUGS (14)
  1. AREDIA [Suspect]
  2. ZOMETA [Suspect]
  3. PERCOCET [Concomitant]
  4. HERCEPTIN [Concomitant]
  5. PENICILLIN VK [Concomitant]
  6. PROZAC [Concomitant]
     Dosage: 20 MG Q AM
  7. PERIDEX [Concomitant]
  8. MARINOL [Concomitant]
  9. RADIATION THERAPY [Concomitant]
  10. FASLODEX [Concomitant]
     Dosage: 250 MG IM Q 4 WEEKS
  11. DECADRON [Concomitant]
     Dosage: 4MG 2 TIMES DAILY
  12. AMBIEN [Concomitant]
  13. PRILOSEC [Concomitant]
  14. MS CONTIN [Concomitant]

REACTIONS (41)
  - ANAEMIA [None]
  - ANXIETY [None]
  - ARTHRITIS [None]
  - ASTHENIA [None]
  - BACK DISORDER [None]
  - BONE DISORDER [None]
  - CENTRAL NERVOUS SYSTEM LESION [None]
  - CRANIOTOMY [None]
  - DECREASED INTEREST [None]
  - DEHYDRATION [None]
  - DENTAL CARIES [None]
  - DRUG TOXICITY [None]
  - DRY MOUTH [None]
  - ENCEPHALOMALACIA [None]
  - EPISTAXIS [None]
  - GASTROINTESTINAL HAEMORRHAGE [None]
  - GENERAL PHYSICAL HEALTH DETERIORATION [None]
  - GINGIVITIS [None]
  - GOITRE [None]
  - HAEMATEMESIS [None]
  - HALLUCINATION [None]
  - HEADACHE [None]
  - HIATUS HERNIA [None]
  - HYPERBARIC OXYGEN THERAPY [None]
  - IMPAIRED HEALING [None]
  - METASTASES TO CENTRAL NERVOUS SYSTEM [None]
  - OPEN WOUND [None]
  - OSTEONECROSIS OF JAW [None]
  - OSTEORADIONECROSIS [None]
  - PAIN [None]
  - PAIN IN JAW [None]
  - PERIODONTAL INFECTION [None]
  - PHOTOPHOBIA [None]
  - PRESYNCOPE [None]
  - PSYCHOTIC DISORDER [None]
  - SCOLIOSIS [None]
  - SEQUESTRECTOMY [None]
  - SINUSITIS [None]
  - SYNCOPE [None]
  - TOOTH EXTRACTION [None]
  - ULCER [None]
